FAERS Safety Report 25378333 (Version 5)
Quarter: 2025Q3

REPORT INFORMATION
  Report Type: Report from Study
  Country: US (occurrence: US)
  Receive Date: 20250530
  Receipt Date: 20250925
  Transmission Date: 20251020
  Serious: No
  Sender: SUNOVION
  Company Number: US-SUMITOMO PHARMA SWITZERLAND GMBH-2025SPA005698

PATIENT
  Age: 74 Year
  Sex: Male

DRUGS (15)
  1. ORGOVYX [Suspect]
     Active Substance: RELUGOLIX
     Indication: Prostate cancer
     Dosage: 120 MG, QD
     Route: 048
     Dates: start: 20250412
  2. TAMSULOSIN [Concomitant]
     Active Substance: TAMSULOSIN
  3. DUTASTERIDE [Concomitant]
     Active Substance: DUTASTERIDE
  4. FERROUS SULFATE [Concomitant]
     Active Substance: FERROUS SULFATE
  5. VITAMIN B12 [Concomitant]
     Active Substance: CYANOCOBALAMIN
  6. VITAMIN C [Concomitant]
     Active Substance: ASCORBIC ACID
  7. VITAMIN D3 [Concomitant]
     Active Substance: CHOLECALCIFEROL
  8. TRELEGY ELLIPTA [Concomitant]
     Active Substance: FLUTICASONE FUROATE\UMECLIDINIUM BROMIDE\VILANTEROL TRIFENATATE
  9. AMOXICILLIN [Concomitant]
     Active Substance: AMOXICILLIN
  10. ELIQUIS [Concomitant]
     Active Substance: APIXABAN
  11. ROSUVASTATIN [Concomitant]
     Active Substance: ROSUVASTATIN
  12. CARVEDILOL [Concomitant]
     Active Substance: CARVEDILOL
  13. ENTRESTO [Concomitant]
     Active Substance: SACUBITRIL\VALSARTAN
  14. FARXIGA [Concomitant]
     Active Substance: DAPAGLIFLOZIN PROPANEDIOL
  15. OMEPRAZOLE [Concomitant]
     Active Substance: OMEPRAZOLE

REACTIONS (8)
  - Arthropod bite [Unknown]
  - Infected bite [Unknown]
  - Pruritus [Unknown]
  - Rash [Unknown]
  - Myalgia [Unknown]
  - Fatigue [Unknown]
  - Incorrect dose administered [Recovered/Resolved]
  - Product dose omission issue [Recovered/Resolved]
